FAERS Safety Report 5690506-X (Version None)
Quarter: 2008Q1

REPORT INFORMATION
  Report Type: 
  Country: None (occurrence: None)
  Receive Date: 20080331
  Receipt Date: 20080331
  Transmission Date: 20080703
  Serious: Yes (Hospitalization)
  Sender: FDA-Public Use
  Company Number: None

PATIENT
  Sex: Male
  Weight: 13 kg

DRUGS (1)
  1. BOTULINUM TOXIN [Suspect]
     Indication: MUSCLE SPASTICITY
     Dosage: 400 UNITS IM
     Route: 030
     Dates: start: 20030317, end: 20080317

REACTIONS (8)
  - ABASIA [None]
  - ASTHENIA [None]
  - CHOKING [None]
  - DYSPHAGIA [None]
  - EYE DISORDER [None]
  - INABILITY TO CRAWL [None]
  - LETHARGY [None]
  - TONGUE DISORDER [None]
